FAERS Safety Report 23123401 (Version 2)
Quarter: 2023Q4

REPORT INFORMATION
  Report Type: Spontaneous
  Country: US (occurrence: US)
  Receive Date: 20231030
  Receipt Date: 20231121
  Transmission Date: 20240110
  Serious: Yes (Hospitalization)
  Sender: FDA-Public Use
  Company Number: US-Vifor (International) Inc.-VIT-2023-08104

PATIENT
  Age: 85 Year
  Sex: Male
  Weight: 60.5 kg

DRUGS (9)
  1. MIRCERA [Suspect]
     Active Substance: METHOXY POLYETHYLENE GLYCOL-EPOETIN BETA
     Indication: Anaemia
     Dosage: FIRST DOSE
     Route: 042
     Dates: start: 20231020
  2. VENOFER [Suspect]
     Active Substance: IRON SUCROSE
     Indication: Anaemia
     Route: 042
     Dates: start: 20231020
  3. CALCITRIOL [Concomitant]
     Active Substance: CALCITRIOL
     Indication: Blood calcium decreased
     Dosage: PO
     Route: 048
  4. EPOGEN [Concomitant]
     Active Substance: ERYTHROPOIETIN
     Indication: Anaemia
     Route: 042
  5. HEPARIN [Concomitant]
     Active Substance: HEPARIN SODIUM
     Indication: Anticoagulant therapy
     Route: 042
  6. BILBERRY [Concomitant]
     Active Substance: BILBERRY
     Indication: Supplementation therapy
     Dosage: PO
     Route: 048
  7. CO Q10 WITH OMEGA 3 [Concomitant]
     Indication: Supplementation therapy
     Dosage: PO
     Route: 048
  8. CO Q10 WITH OMEGA 3 [Concomitant]
     Indication: Supplementation therapy
     Dosage: PO
     Route: 048
  9. D-MANNOSE [Concomitant]
     Indication: Supplementation therapy
     Dosage: PO
     Route: 048

REACTIONS (7)
  - Drug hypersensitivity [Recovered/Resolved]
  - Pruritus [Recovered/Resolved]
  - Dyspnoea [Recovered/Resolved]
  - Tachycardia [Recovered/Resolved]
  - Respiratory distress [Recovered/Resolved]
  - Malaise [Recovered/Resolved]
  - Nausea [Recovered/Resolved]

NARRATIVE: CASE EVENT DATE: 20231020
